FAERS Safety Report 9718571 (Version 1)
Quarter: 2013Q4

REPORT INFORMATION
  Report Type: Not Available
  Country: US (occurrence: US)
  Receive Date: 20131125
  Receipt Date: 20131125
  Transmission Date: 20140711
  Serious: No
  Sender: FDA-Public Use
  Company Number: US-VIVUS-2013V1000775

PATIENT
  Age: 67 Year
  Sex: Female
  Weight: 106.24 kg

DRUGS (7)
  1. QSYMIA 7.5MG/46MG [Suspect]
     Indication: WEIGHT DECREASED
     Route: 048
     Dates: start: 201307, end: 201310
  2. QSYMIA 3.75MG/23MG [Suspect]
     Indication: WEIGHT DECREASED
     Route: 048
  3. QSYMIA 3.75MG/23MG [Suspect]
     Route: 048
     Dates: start: 20131016
  4. LISINOPRIL [Concomitant]
     Indication: HYPERTENSION
     Route: 048
  5. HYGROTON [Concomitant]
     Indication: FLUID RETENTION
     Route: 048
  6. POTASSIUM CHLORIDE [Concomitant]
     Indication: PRODUCT USED FOR UNKNOWN INDICATION
     Route: 048
  7. ACTOS [Concomitant]
     Indication: DIABETES MELLITUS
     Route: 048

REACTIONS (8)
  - Food craving [Unknown]
  - Hunger [Recovered/Resolved]
  - Feeling of body temperature change [Recovered/Resolved]
  - Pyrexia [Recovered/Resolved]
  - Tremor [Recovered/Resolved]
  - Diarrhoea [Unknown]
  - Dry mouth [Recovered/Resolved]
  - Headache [Recovered/Resolved]
